FAERS Safety Report 9450025 (Version 2)
Quarter: 2013Q3

REPORT INFORMATION
  Report Type: Spontaneous
  Country: US (occurrence: US)
  Receive Date: 20130809
  Receipt Date: 20130812
  Transmission Date: 20140515
  Serious: Yes (Other)
  Sender: FDA-Public Use
  Company Number: US-PFIZER INC-2013230808

PATIENT
  Age: 66 Year
  Sex: Female
  Weight: 86.17 kg

DRUGS (9)
  1. TEGRETOL [Suspect]
     Indication: TRIGEMINAL NEURALGIA
     Dosage: 400 MG, 2X/DAY
  2. NIFEDIPINE [Concomitant]
     Indication: HYPERTENSION
     Dosage: 30 MG, 1X/DAY
     Route: 048
  3. ENALAPRIL [Concomitant]
     Dosage: 10 MG, 2X/DAY
     Route: 048
  4. DONEPEZIL [Concomitant]
     Dosage: 5 MG, 1X/DAY
  5. CALCIUM [Concomitant]
     Dosage: 600 MG, UNK
  6. VITAMIN D [Concomitant]
     Dosage: 400 IU, UNK
  7. CENTRAVIT [Concomitant]
     Dosage: UNK
  8. VOLTAREN [Concomitant]
     Indication: ARTHROPATHY
     Dosage: UNK, 2X/DAY
     Route: 061
  9. LYRICA [Suspect]
     Indication: TRIGEMINAL NEURALGIA
     Dosage: 100 MG, 4X/DAY
     Route: 048

REACTIONS (6)
  - Off label use [Unknown]
  - Sarcoidosis [Not Recovered/Not Resolved]
  - Hearing impaired [Not Recovered/Not Resolved]
  - Blood pressure fluctuation [Unknown]
  - Drug ineffective [Unknown]
  - Drug ineffective for unapproved indication [Unknown]
